FAERS Safety Report 19901889 (Version 1)
Quarter: 2021Q3

REPORT INFORMATION
  Report Type: Spontaneous
  Country: US (occurrence: US)
  Receive Date: 20210930
  Receipt Date: 20210930
  Transmission Date: 20211014
  Serious: Yes (Other)
  Sender: FDA-Public Use
  Company Number: US-JNJFOC-20210928871

PATIENT
  Sex: Female

DRUGS (1)
  1. NEUTROGENA INVISIBLE DAILY DEFENSE BROAD SPECTRUM SPF 60 PLUS [Suspect]
     Active Substance: AVOBENZONE\HOMOSALATE\OCTISALATE\OCTOCRYLENE
     Indication: PHOTOSENSITIVITY REACTION
     Dosage: USING PRODUCT FOR YEARS
     Route: 061

REACTIONS (2)
  - Precancerous skin lesion [Unknown]
  - Drug ineffective [Unknown]

NARRATIVE: CASE EVENT DATE: 2020
